FAERS Safety Report 6295849-7 (Version None)
Quarter: 2009Q3

REPORT INFORMATION
  Report Type: 
  Country: None (occurrence: None)
  Receive Date: 20090804
  Receipt Date: 20090727
  Transmission Date: 20100115
  Serious: Yes (Hospitalization)
  Sender: FDA-Public Use
  Company Number: ES-ROCHE-638598

PATIENT
  Sex: Male
  Weight: 81 kg

DRUGS (5)
  1. CAPECITABINE [Suspect]
     Dosage: FREQUENCY DAILY. TEMPORARILY INTERRUPTED, LAST DOSE PRIOR TO SAE 11 JUN 2009
     Route: 048
     Dates: start: 20090223
  2. BEVACIZUMAB [Suspect]
     Dosage: LAST DOSE PRIOR TO SAE 08 JUNE 2009
     Route: 042
     Dates: start: 20090223
  3. EMCONCOR [Concomitant]
     Dates: start: 20050101
  4. SINTROM [Concomitant]
     Dates: start: 20050101
  5. PROSCAR [Concomitant]

REACTIONS (1)
  - HERPES ZOSTER [None]
